FAERS Safety Report 7207968-9 (Version None)
Quarter: 2010Q4

REPORT INFORMATION
  Report Type: 
  Country: None (occurrence: None)
  Receive Date: 20101222
  Receipt Date: 20101209
  Transmission Date: 20110411
  Serious: Yes (Death)
  Sender: FDA-Public Use
  Company Number: UTC-003197

PATIENT
  Age: 61 Year
  Sex: Female
  Weight: 47.6 kg

DRUGS (1)
  1. TYVASO [Suspect]
     Dosage: 216 MCG, D, INHALATION
     Route: 055

REACTIONS (1)
  - DEATH [None]
